FAERS Safety Report 8150177-X (Version None)
Quarter: 2012Q1

REPORT INFORMATION
  Report Type: 
  Country: None (occurrence: None)
  Receive Date: 20120220
  Receipt Date: 20120217
  Transmission Date: 20120608
  Serious: Yes (Other)
  Sender: FDA-Public Use
  Company Number: US-PFIZER INC-2012043677

PATIENT
  Sex: Female
  Weight: 81.633 kg

DRUGS (18)
  1. DETROL LA [Concomitant]
     Dosage: UNK
  2. CYMBALTA [Concomitant]
     Dosage: UNK
  3. ABILIFY [Concomitant]
     Dosage: UNK
  4. CHANTIX [Suspect]
     Dosage: UNK
     Route: 048
     Dates: start: 20101101
  5. VYVANSE [Concomitant]
     Dosage: UNK
  6. METOPROLOL [Concomitant]
     Dosage: UNK
  7. SIMVASTATIN [Concomitant]
     Dosage: UNK
  8. SEROQUEL [Concomitant]
     Dosage: UNK
  9. TRAMADOL [Concomitant]
     Dosage: UNK
  10. METHOCARBAMOL [Concomitant]
     Dosage: UNK
  11. CHANTIX [Suspect]
     Indication: SMOKING CESSATION THERAPY
     Dosage: 0.5 MG, 1X/DAY
     Route: 048
     Dates: start: 20090101
  12. SINGULAIR [Concomitant]
     Dosage: UNK
  13. ADVAIR DISKUS 100/50 [Concomitant]
     Dosage: UNK
  14. MELOXICAM [Concomitant]
     Dosage: UNK
  15. XANAX [Concomitant]
     Dosage: UNK
  16. BENZTROPINE MESYLATE [Concomitant]
     Dosage: UNK
  17. LAMOTRIGINE [Concomitant]
     Dosage: UNK
  18. NEXIUM [Concomitant]
     Dosage: UNK

REACTIONS (1)
  - HALLUCINATION [None]
